FAERS Safety Report 23429585 (Version 2)
Quarter: 2024Q1

REPORT INFORMATION
  Report Type: Spontaneous
  Country: PE (occurrence: PE)
  Receive Date: 20240122
  Receipt Date: 20240301
  Transmission Date: 20240409
  Serious: Yes (Other)
  Sender: FDA-Public Use
  Company Number: PE-PFIZER INC-PV202300100051

PATIENT
  Age: 69 Year
  Sex: Male

DRUGS (1)
  1. SUTENT [Suspect]
     Active Substance: SUNITINIB MALATE
     Dosage: 37.5 MG, CYCLIC (37.5 MG DAILY, 2 WEEKS OF INTAKE AND 1 WEEK OF REST)
     Route: 048

REACTIONS (13)
  - Pneumonitis [Not Recovered/Not Resolved]
  - Nausea [Not Recovered/Not Resolved]
  - Skin lesion [Not Recovered/Not Resolved]
  - Blister [Not Recovered/Not Resolved]
  - Skin exfoliation [Not Recovered/Not Resolved]
  - Swelling of eyelid [Not Recovered/Not Resolved]
  - Swelling face [Not Recovered/Not Resolved]
  - Pain in extremity [Not Recovered/Not Resolved]
  - Vomiting [Not Recovered/Not Resolved]
  - Blood creatinine increased [Recovered/Resolved]
  - Hyperkeratosis [Not Recovered/Not Resolved]
  - Inflammation [Not Recovered/Not Resolved]
  - Yellow skin [Not Recovered/Not Resolved]

NARRATIVE: CASE EVENT DATE: 20231207
